FAERS Safety Report 11457132 (Version 2)
Quarter: 2015Q4

REPORT INFORMATION
  Report Type: Report from Study
  Country: US (occurrence: US)
  Receive Date: 20150904
  Receipt Date: 20151006
  Transmission Date: 20160304
  Serious: Yes (Life-Threatening, Other)
  Sender: FDA-Public Use
  Company Number: US-009507513-1509USA000698

PATIENT

DRUGS (8)
  1. HEXADROL [Suspect]
     Active Substance: DEXAMETHASONE
     Indication: PLASMA CELL MYELOMA
     Dosage: 20 MG, DAYS 1, 2, 4, 5, 8, 9, 11 AND 12 OF EVERY 21-DAY CYCLE, FOR 8 CYCLES
     Route: 048
  2. BORTEZOMIB [Suspect]
     Active Substance: BORTEZOMIB
     Dosage: 1.0 MG/M2, DAYS 1, 8 AND 15 OF EVERY 28-DAY CYCLE
     Route: 058
  3. LENALIDOMIDE [Suspect]
     Active Substance: LENALIDOMIDE
     Indication: PLASMA CELL MYELOMA
     Dosage: 25 MG, DAYS 1-14 OF EVERY 21-DAY CYCLE, FOR 8 CYCLES
     Route: 048
  4. LENALIDOMIDE [Suspect]
     Active Substance: LENALIDOMIDE
     Dosage: 15 MG, DAYS 1-21 OF EVERY 28-DAY CYCLE
     Route: 048
  5. BORTEZOMIB [Suspect]
     Active Substance: BORTEZOMIB
     Indication: PLASMA CELL MYELOMA
     Dosage: 1.3 MG/M2, DAYS 1, 4, 8 AND 11 OF EVERY 21-DAY CYCLE, FOR 8 CYCLES
     Route: 058
  6. HEXADROL [Suspect]
     Active Substance: DEXAMETHASONE
     Dosage: 12 MG, DAY 1, 8 AND 15 OF EVERY 28-DAY CYCLE
     Route: 048
  7. ELOTUZUMAB [Suspect]
     Active Substance: ELOTUZUMAB
     Dosage: 10 MG/KG, DAY 1 AND 15 OF EVERY 28-DAY CYCLE
     Route: 042
  8. ELOTUZUMAB [Suspect]
     Active Substance: ELOTUZUMAB
     Indication: PLASMA CELL MYELOMA
     Dosage: 10 MG/KG, 21-DAY CYCLE, DAYS 1, 8 AND 15 OF CYCLES 1-2, THEN DAYS 1 AND 11 OF CYCLES 3-8
     Route: 042

REACTIONS (6)
  - Peripheral sensory neuropathy [Unknown]
  - Platelet count decreased [Unknown]
  - Neutrophil count decreased [Unknown]
  - Leukocytosis [Unknown]
  - Nervous system disorder [Unknown]
  - Lymphocyte count decreased [Unknown]
